FAERS Safety Report 5557060-4 (Version None)
Quarter: 2007Q4

REPORT INFORMATION
  Report Type: 
  Country: None (occurrence: None)
  Receive Date: 20071214
  Receipt Date: 20071205
  Transmission Date: 20080405
  Serious: Yes (Disabling)
  Sender: FDA-Public Use
  Company Number: AU-ABBOTT-07P-008-0427368-00

PATIENT
  Sex: Female

DRUGS (1)
  1. DILAUDID [Suspect]
     Indication: PAIN
     Dates: start: 20070911

REACTIONS (7)
  - EPIDERMOLYSIS [None]
  - ERYTHEMA [None]
  - INCORRECT DOSE ADMINISTERED [None]
  - PAIN [None]
  - RASH [None]
  - SKIN EXFOLIATION [None]
  - THERAPY CESSATION [None]
